FAERS Safety Report 4985355-1 (Version None)
Quarter: 2006Q1

REPORT INFORMATION
  Report Type: 
  Country: None (occurrence: None)
  Receive Date: 20060309
  Receipt Date: 20050502
  Transmission Date: 20060701
  Serious: No
  Sender: FDA-Public Use
  Company Number: 403812

PATIENT
  Age: 17 Year
  Sex: Female

DRUGS (1)
  1. ACCUTANE [Suspect]
     Dosage: 40 MG 2 PER DAY ORAL
     Route: 048

REACTIONS (2)
  - ABDOMINAL PAIN [None]
  - HEADACHE [None]
